FAERS Safety Report 9860702 (Version 1)
Quarter: 2014Q1

REPORT INFORMATION
  Report Type: Spontaneous
  Country: US (occurrence: None)
  Receive Date: 20140131
  Receipt Date: 20140131
  Transmission Date: 20141002
  Serious: Yes (Other)
  Sender: FDA-Public Use
  Company Number: None

PATIENT
  Age: 71 Year
  Sex: Female
  Weight: 95.26 kg

DRUGS (1)
  1. TOVIAZ [Suspect]
     Indication: HYPERTONIC BLADDER
     Route: 048
     Dates: start: 20140121, end: 20140129

REACTIONS (7)
  - Energy increased [None]
  - Poor quality sleep [None]
  - Depressed mood [None]
  - Depression [None]
  - Crying [None]
  - Suicidal ideation [None]
  - Reaction to drug excipients [None]
